FAERS Safety Report 9417172 (Version 2)
Quarter: 2013Q3

REPORT INFORMATION
  Report Type: Report from Study
  Country: US (occurrence: US)
  Receive Date: 20130724
  Receipt Date: 20130730
  Transmission Date: 20140515
  Serious: Yes (Death, Hospitalization, Other)
  Sender: FDA-Public Use
  Company Number: US-ALEXION PHARMACEUTICALS INC.-A201301663

PATIENT
  Age: 69 Year
  Sex: Male

DRUGS (1)
  1. SOLIRIS [Suspect]
     Indication: HAEMOLYTIC URAEMIC SYNDROME
     Dosage: UNK
     Route: 042

REACTIONS (7)
  - Death [Fatal]
  - Pseudomonal sepsis [Unknown]
  - Febrile neutropenia [Unknown]
  - Respiratory distress [Not Recovered/Not Resolved]
  - Renal failure [Unknown]
  - Lung infiltration [Unknown]
  - Malaise [Unknown]
